FAERS Safety Report 9767896 (Version 1)
Quarter: 2013Q3

REPORT INFORMATION
  Report Type: Spontaneous
  Country: US (occurrence: None)
  Receive Date: 20130827
  Receipt Date: 20130827
  Transmission Date: 20140515
  Serious: Yes (Other)
  Sender: FDA-Public Use
  Company Number: 163-21880-13074866

PATIENT
  Age: 61 Year
  Sex: Female

DRUGS (11)
  1. REVLIMID [Suspect]
     Indication: MYELODYSPLASTIC SYNDROME
     Dosage: 5 MG, 21 IN 28 D, PO
     Route: 048
     Dates: start: 20130404
  2. AMLODIPINE BESYLATE (AMLODIPINE BESILATE) (UNKNOWN) [Concomitant]
  3. DIOVAN (VALSARTAN) (TABLETS) [Concomitant]
  4. PREDNISONE (PREDNISONE) (TABLETS) [Concomitant]
  5. KLOR CON (POTASSIUM CHLORIDE) (TABLETS) [Concomitant]
  6. METFORMIN (METFORMIN) (TABLETS) [Concomitant]
  7. IRON (IRON) (TABLETS) [Concomitant]
  8. ONGLYZA (SAXAGLIPTIN HYDROCHLORIDE) (TABLETS) [Concomitant]
  9. FOLIC ACID (FOLIC ACID) (TABLETS) [Concomitant]
  10. OXYCODONE/ACETAMINOPHEN (OXYCOCET) (UNKNOWN) [Concomitant]
  11. BENICAR (OLMESARTAN MEDOXOMIL) (TABLETS) [Concomitant]

REACTIONS (1)
  - Blood count abnormal [None]
